FAERS Safety Report 9479549 (Version 2)
Quarter: 2013Q4

REPORT INFORMATION
  Report Type: Report from Study
  Country: US (occurrence: US)
  Receive Date: 20130827
  Receipt Date: 20131011
  Transmission Date: 20140711
  Serious: Yes (Disabling)
  Sender: FDA-Public Use
  Company Number: US-ROCHE-1266891

PATIENT
  Age: 38 Year
  Sex: Male

DRUGS (5)
  1. AVASTIN [Suspect]
     Indication: NEUROFIBROMATOSIS
     Route: 042
  2. ZOFRAN [Concomitant]
     Dosage: GIVEN AT THE TIME OF THE AVASTIN INFUSION
     Route: 042
  3. PENICILLIN V POTASSIUM [Concomitant]
     Dosage: PENICILLIN WITH POTASSIUM
     Route: 048
  4. MIRALAX [Concomitant]
     Route: 048
  5. GLYCOLAX [Concomitant]
     Route: 048

REACTIONS (6)
  - Deafness unilateral [Unknown]
  - Tinnitus [Unknown]
  - Dizziness [Unknown]
  - White blood cell count decreased [Unknown]
  - Blood bilirubin increased [Unknown]
  - Frustration [Unknown]
